FAERS Safety Report 5723847-8 (Version None)
Quarter: 2008Q2

REPORT INFORMATION
  Report Type: 
  Country: None (occurrence: None)
  Receive Date: 20080430
  Receipt Date: 20080423
  Transmission Date: 20081010
  Serious: Yes (Death, Life-Threatening)
  Sender: FDA-Public Use
  Company Number: US-AVENTIS-200813769GDDC

PATIENT
  Age: 57 Year
  Sex: Female

DRUGS (14)
  1. DOCETAXEL [Suspect]
     Indication: NON-SMALL CELL LUNG CANCER
     Route: 042
     Dates: start: 20070108, end: 20070129
  2. PROZAC [Concomitant]
  3. METFORMIN HCL [Concomitant]
  4. POTASSIUM CHLORIDE [Concomitant]
  5. PLENDIL [Concomitant]
  6. PROTONIX [Concomitant]
  7. BENICAR [Concomitant]
  8. LIPITOR [Concomitant]
  9. COUMADIN [Concomitant]
  10. COMPAZINE [Concomitant]
  11. ATIVAN [Concomitant]
  12. PERCOCET [Concomitant]
  13. DURAGESIC-100 [Concomitant]
  14. MEGACE [Concomitant]

REACTIONS (1)
  - CARDIAC FAILURE CONGESTIVE [None]
